FAERS Safety Report 26207811 (Version 1)
Quarter: 2025Q4

REPORT INFORMATION
  Report Type: Spontaneous
  Country: US (occurrence: US)
  Receive Date: 20251229
  Receipt Date: 20251229
  Transmission Date: 20260117
  Serious: Yes (Other)
  Sender: BRISTOL-MYERS SQUIBB COMPANY
  Company Number: US-BRISTOL-MYERS SQUIBB COMPANY-2025-172455

PATIENT
  Age: 78 Year
  Sex: Male
  Weight: 106.59 kg

DRUGS (1)
  1. REVLIMID [Suspect]
     Active Substance: LENALIDOMIDE
     Indication: Plasma cell myeloma
     Dosage: FREQ : ONCE DAILY FOR DAYS 1-21 OF A 28 DAY CYCLE, WITH 7 DAY BREAK
     Route: 048
     Dates: start: 20201130, end: 202404

REACTIONS (1)
  - Plasma cell myeloma recurrent [Unknown]
